FAERS Safety Report 23947607 (Version 2)
Quarter: 2025Q2

REPORT INFORMATION
  Report Type: Spontaneous
  Country: ES (occurrence: ES)
  Receive Date: 20240606
  Receipt Date: 20250612
  Transmission Date: 20250716
  Serious: Yes (Other)
  Sender: TEVA
  Company Number: ES-TEVA-VS-3205366

PATIENT
  Age: 2 Year
  Sex: Female

DRUGS (2)
  1. AMOXICILLIN\CLAVULANIC ACID [Suspect]
     Active Substance: AMOXICILLIN\CLAVULANIC ACID
     Indication: Product use in unapproved indication
     Route: 065
  2. AMOXICILLIN\CLAVULANIC ACID [Suspect]
     Active Substance: AMOXICILLIN\CLAVULANIC ACID
     Indication: Product use in unapproved indication
     Route: 042

REACTIONS (2)
  - Multiple sclerosis [Unknown]
  - Drug ineffective [Unknown]
